FAERS Safety Report 25369134 (Version 3)
Quarter: 2025Q3

REPORT INFORMATION
  Report Type: Spontaneous
  Country: US (occurrence: US)
  Receive Date: 20250528
  Receipt Date: 20250731
  Transmission Date: 20251021
  Serious: No
  Sender: CALLIDITAS THERAPEUTICS AB
  Company Number: US-Calliditas-2025CAL01372

PATIENT
  Age: 30 Year
  Sex: Male

DRUGS (7)
  1. TARPEYO [Suspect]
     Active Substance: BUDESONIDE
     Indication: IgA nephropathy
     Route: 048
     Dates: start: 20241109
  2. LISINOPRIL [Concomitant]
     Active Substance: LISINOPRIL
  3. BACTRIM [Concomitant]
     Active Substance: SULFAMETHOXAZOLE\TRIMETHOPRIM
  4. PENICILLIN V POTASSIUM [Concomitant]
     Active Substance: PENICILLIN V POTASSIUM
  5. MINOXIDIL [Concomitant]
     Active Substance: MINOXIDIL
  6. CLARITIN [Concomitant]
     Active Substance: LORATADINE
  7. CLINDAMYCIN [Concomitant]
     Active Substance: CLINDAMYCIN

REACTIONS (6)
  - Product dose omission issue [Unknown]
  - Infection susceptibility increased [Unknown]
  - Anxiety [Unknown]
  - Fatigue [Unknown]
  - Acne [Unknown]
  - Nasopharyngitis [Unknown]
